FAERS Safety Report 25170449 (Version 3)
Quarter: 2025Q3

REPORT INFORMATION
  Report Type: Spontaneous
  Country: US (occurrence: US)
  Receive Date: 20250408
  Receipt Date: 20250922
  Transmission Date: 20251021
  Serious: Yes (Other)
  Sender: AUROBINDO
  Company Number: US-AUROBINDO-AUR-APL-2025-017296

PATIENT
  Age: 55 Year
  Sex: Female

DRUGS (4)
  1. BUSPIRONE HYDROCHLORIDE [Suspect]
     Active Substance: BUSPIRONE HYDROCHLORIDE
     Indication: Anxiety
     Dosage: 10 MILLIGRAM, 3 TIMES A DAY
     Route: 065
  2. METOPROLOL [Suspect]
     Active Substance: METOPROLOL
     Indication: Secondary hypertension
     Route: 065
  3. LISINOPRIL [Suspect]
     Active Substance: LISINOPRIL
     Indication: Secondary hypertension
     Dosage: 40 MILLIGRAM, ONCE A DAY
     Route: 065
  4. CLONIDINE [Suspect]
     Active Substance: CLONIDINE
     Indication: Secondary hypertension
     Dosage: 0.1 MILLIGRAM, TWO TIMES A DAY
     Route: 065

REACTIONS (3)
  - Hypertensive urgency [Recovering/Resolving]
  - Secondary hypertension [Recovering/Resolving]
  - Drug ineffective [Unknown]
